FAERS Safety Report 15885486 (Version 12)
Quarter: 2021Q2

REPORT INFORMATION
  Report Type: Spontaneous
  Country: US (occurrence: US)
  Receive Date: 20190129
  Receipt Date: 20210622
  Transmission Date: 20210716
  Serious: No
  Sender: FDA-Public Use
  Company Number: US-PFIZER INC-2019042280

PATIENT
  Age: 54 Year
  Sex: Female
  Weight: 42 kg

DRUGS (5)
  1. LYRICA [Suspect]
     Active Substance: PREGABALIN
     Indication: FIBROMYALGIA
     Dosage: 50 MG, 3X/DAY [TAKE 1 CAPSULE (50 MG TOTAL) BY MOUTH THREE TIMES A DAY]
     Route: 048
     Dates: start: 201901, end: 201901
  2. LYRICA [Suspect]
     Active Substance: PREGABALIN
     Dosage: 75 MG, 4X/DAY
     Route: 048
  3. LYRICA [Suspect]
     Active Substance: PREGABALIN
     Indication: MIGRAINE
     Dosage: 150 MG, THREE TIMES A DAY
     Route: 048
     Dates: start: 201901, end: 2019
  4. LYRICA [Suspect]
     Active Substance: PREGABALIN
     Indication: PAIN
     Dosage: UNK, TWICE A DAY
     Dates: start: 201909, end: 2019
  5. LYRICA [Suspect]
     Active Substance: PREGABALIN
     Dosage: 75 MG, THREE TIMES A DAY
     Route: 048
     Dates: start: 20191203

REACTIONS (6)
  - Intentional dose omission [Unknown]
  - Feeling abnormal [Unknown]
  - Therapeutic product effect incomplete [Unknown]
  - Illness [Unknown]
  - Pain in extremity [Unknown]
  - Nervousness [Unknown]

NARRATIVE: CASE EVENT DATE: 2019
